FAERS Safety Report 5115972-X (Version None)
Quarter: 2006Q3

REPORT INFORMATION
  Report Type: 
  Country: None (occurrence: None)
  Receive Date: 20060927
  Receipt Date: 20060105
  Transmission Date: 20061208
  Serious: No
  Sender: FDA-Public Use
  Company Number: US-BRISTOL-MYERS SQUIBB COMPANY-13238530

PATIENT
  Sex: Female

DRUGS (1)
  1. DEFINITY [Suspect]
     Indication: STRESS ECHOCARDIOGRAM
     Route: 040
     Dates: start: 20051221

REACTIONS (5)
  - BACK PAIN [None]
  - CHEST PAIN [None]
  - DYSPNOEA [None]
  - FLUSHING [None]
  - NAUSEA [None]
